FAERS Safety Report 16579221 (Version 2)
Quarter: 2020Q3

REPORT INFORMATION
  Report Type: Report from Study
  Country: IE (occurrence: IE)
  Receive Date: 20190716
  Receipt Date: 20190724
  Transmission Date: 20201105
  Serious: Yes (Death, Life-Threatening, Hospitalization, Other)
  Sender: FDA-Public Use
  Company Number: IE-PFIZER INC-2019284838

PATIENT
  Age: 62 Year
  Sex: Male
  Weight: 72 kg

DRUGS (7)
  1. TALAZOPARIB. [Suspect]
     Active Substance: TALAZOPARIB
     Indication: BASAL CELL CARCINOMA
  2. MAXOLON [Concomitant]
     Active Substance: METOCLOPRAMIDE HYDROCHLORIDE
     Dosage: 10 MG, 3X/DAY
     Route: 048
  3. ADVIL [IBUPROFEN] [Concomitant]
     Active Substance: IBUPROFEN
     Dosage: 40 MG, DAILY
     Route: 048
  4. ONE ALPHA [Concomitant]
     Active Substance: ALFACALCIDOL
     Dosage: 1 MG, UNK
     Route: 048
  5. TALAZOPARIB. [Suspect]
     Active Substance: TALAZOPARIB
     Indication: OESOPHAGEAL CANCER METASTATIC
     Dosage: 1 MG, DAILY
     Route: 048
     Dates: start: 20190627, end: 20190630
  6. TRAMADOL. [Concomitant]
     Active Substance: TRAMADOL
     Dosage: 100 MG, 3X/DAY
     Route: 048
  7. LYNX [LINCOMYCIN] [Concomitant]
     Dosage: 100 MG, UNK

REACTIONS (7)
  - Hypoxia [Unknown]
  - Renal impairment [Unknown]
  - Neoplasm progression [Fatal]
  - Lower respiratory tract infection [Unknown]
  - Dyspnoea [Unknown]
  - Pulmonary embolism [Unknown]
  - Productive cough [Unknown]

NARRATIVE: CASE EVENT DATE: 20190627
